FAERS Safety Report 4538217-8 (Version None)
Quarter: 2004Q4

REPORT INFORMATION
  Report Type: 
  Country: None (occurrence: None)
  Receive Date: 20041221
  Receipt Date: 20041212
  Transmission Date: 20050328
  Serious: Yes (Hospitalization)
  Sender: FDA-Public Use
  Company Number: 2004-123436-NL

PATIENT
  Age: 75 Year
  Sex: Female

DRUGS (1)
  1. MIRTAZAPINE [Suspect]
     Dosage: ORAL
     Route: 048

REACTIONS (3)
  - BLOOD SODIUM DECREASED [None]
  - PETIT MAL EPILEPSY [None]
  - TRANSIENT ISCHAEMIC ATTACK [None]
